FAERS Safety Report 16035649 (Version 1)
Quarter: 2019Q1

REPORT INFORMATION
  Report Type: Spontaneous
  Country: GB (occurrence: GB)
  Receive Date: 20190305
  Receipt Date: 20190305
  Transmission Date: 20190418
  Serious: Yes (Other)
  Sender: FDA-Public Use
  Company Number: GB-MYLANLABS-2019M1018750

PATIENT
  Age: 32 Year
  Sex: Female
  Weight: 59 kg

DRUGS (10)
  1. CHLORPHENAMINE [Concomitant]
     Active Substance: CHLORPHENIRAMINE MALEATE
     Dosage: FOUR TO SIX HOURLY.
     Dates: start: 20180726
  2. INDOMETACIN [Concomitant]
     Active Substance: INDOMETHACIN
     Dosage: 150 MILLIGRAM, QD
     Dates: start: 20180607
  3. AMITRIPTYLINE [Concomitant]
     Active Substance: AMITRIPTYLINE
     Dosage: AT NIGHT
     Dates: start: 20180706, end: 20180716
  4. COCODAMOL [Concomitant]
     Active Substance: ACETAMINOPHEN\CODEINE PHOSPHATE
     Dosage: UNK, 8MG/500MG
  5. TOPIRAMATE. [Suspect]
     Active Substance: TOPIRAMATE
     Indication: VAGINAL HAEMORRHAGE
     Dosage: ONE DAILY, INCREASE AFTER TWO WEEKS TO TWICE A DAY
     Route: 048
  6. COCODAMOL [Concomitant]
     Active Substance: ACETAMINOPHEN\CODEINE PHOSPHATE
     Dosage: 30MG/500MG. 1-2  UP TO FOUR TIMES DAILY
     Dates: start: 20180720
  7. CASSIA SENNA [Concomitant]
     Active Substance: HERBALS\SENNOSIDES
     Dosage: AT NIGHT
     Dates: start: 20180618
  8. FLUOXETINE [Concomitant]
     Active Substance: FLUOXETINE HYDROCHLORIDE
     Dosage: 20 MILLIGRAM, QD
     Dates: start: 20180521
  9. TRAMADOL. [Concomitant]
     Active Substance: TRAMADOL
     Dosage: FOUR TIMES A DAY, AS NECEESSARY
     Dates: start: 20180607
  10. ISPAGHULA EXTRACT\PSYLLIUM [Concomitant]
     Active Substance: HERBALS\PLANTAGO OVATA SEED\PLANTAGO SEED
     Dosage: AS DIRECTED.
     Dates: start: 20180618

REACTIONS (2)
  - Drug hypersensitivity [Recovered/Resolved]
  - Hepatitis [Unknown]

NARRATIVE: CASE EVENT DATE: 20180726
